FAERS Safety Report 17503977 (Version 1)
Quarter: 2020Q1

REPORT INFORMATION
  Report Type: Spontaneous
  Country: US (occurrence: US)
  Receive Date: 20200305
  Receipt Date: 20200305
  Transmission Date: 20200409
  Serious: No
  Sender: FDA-Public Use
  Company Number: US-ROCHE-2356726

PATIENT
  Age: 12 Year
  Sex: Female
  Weight: 116 kg

DRUGS (1)
  1. XOLAIR [Suspect]
     Active Substance: OMALIZUMAB
     Indication: IDIOPATHIC URTICARIA
     Route: 058
     Dates: start: 20180602, end: 20190602

REACTIONS (3)
  - Vision blurred [Unknown]
  - Pain [Unknown]
  - Vertigo [Unknown]
